FAERS Safety Report 10028321 (Version 3)
Quarter: 2014Q3

REPORT INFORMATION
  Report Type: Spontaneous
  Country: US (occurrence: US)
  Receive Date: 20140321
  Receipt Date: 20140804
  Transmission Date: 20150326
  Serious: Yes (Hospitalization, Disabling, Other)
  Sender: FDA-Public Use
  Company Number: US-009507513-0903USA01375

PATIENT
  Sex: Female
  Weight: 79.38 kg

DRUGS (4)
  1. FOSAMAX [Suspect]
     Active Substance: ALENDRONATE SODIUM
     Indication: OSTEOPOROSIS PROPHYLAXIS
     Dosage: 70 MG, QW
     Route: 048
     Dates: start: 20020302, end: 20070625
  2. FOSAMAX PLUS D [Suspect]
     Active Substance: ALENDRONATE SODIUM\CHOLECALCIFEROL
     Indication: OSTEOPOROSIS PROPHYLAXIS
     Dosage: 70MG/2800 IU, WEEKLY
     Route: 048
     Dates: start: 20070625, end: 200810
  3. FOSAMAX [Suspect]
     Active Substance: ALENDRONATE SODIUM
     Indication: OSTEOPOROSIS
     Dosage: 10 MG, UNK
     Route: 048
     Dates: start: 1998, end: 2004
  4. SYNTHROID [Concomitant]
     Active Substance: LEVOTHYROXINE SODIUM
     Dosage: 0.112 MG, QD
     Dates: start: 1994

REACTIONS (38)
  - Hypertension [Unknown]
  - Rotator cuff syndrome [Unknown]
  - Fibromyalgia [Not Recovered/Not Resolved]
  - Uterine disorder [Unknown]
  - Neck pain [Unknown]
  - Tendonitis [Not Recovered/Not Resolved]
  - Mitral valve incompetence [Unknown]
  - Coagulation time prolonged [Recovering/Resolving]
  - Dental caries [Unknown]
  - Depression [Unknown]
  - Exostosis [Unknown]
  - Open reduction of fracture [Not Recovered/Not Resolved]
  - Lumbar spinal stenosis [Not Recovered/Not Resolved]
  - Spondylolisthesis [Unknown]
  - Intervertebral disc degeneration [Unknown]
  - Ear pain [Unknown]
  - Pneumonia [Unknown]
  - Hypercholesterolaemia [Unknown]
  - Foot fracture [Unknown]
  - Sleep apnoea syndrome [Unknown]
  - Foot deformity [Unknown]
  - Periodontitis [Unknown]
  - Spinal fracture [Unknown]
  - Osteoarthritis [Unknown]
  - Effusion [Unknown]
  - Breast mass [Unknown]
  - Bursitis [Unknown]
  - Fall [Unknown]
  - Cardiac failure congestive [Recovered/Resolved]
  - Open reduction of fracture [Not Recovered/Not Resolved]
  - Groin pain [Unknown]
  - Tendon rupture [Unknown]
  - Bursitis [Unknown]
  - Back pain [Unknown]
  - Femur fracture [Not Recovered/Not Resolved]
  - Hyperlipidaemia [Unknown]
  - Femur fracture [Not Recovered/Not Resolved]
  - Femur fracture [Not Recovered/Not Resolved]

NARRATIVE: CASE EVENT DATE: 1998
